FAERS Safety Report 24002051 (Version 2)
Quarter: 2024Q3

REPORT INFORMATION
  Report Type: Spontaneous
  Country: US (occurrence: US)
  Receive Date: 20240622
  Receipt Date: 20240725
  Transmission Date: 20241017
  Serious: No
  Sender: GLAXOSMITHKLINE
  Company Number: US-GSK-US2024073801

PATIENT
  Age: 44 Year
  Sex: Male
  Weight: 225 kg

DRUGS (3)
  1. BENLYSTA [Suspect]
     Active Substance: BELIMUMAB
     Indication: Product used for unknown indication
     Dosage: 1000 MG (1 VIALS)
     Route: 042
     Dates: start: 20240603
  2. BENLYSTA [Suspect]
     Active Substance: BELIMUMAB
     Dosage: 1000 MG (5 VIALS)
     Dates: end: 20240603
  3. XYZAL [Concomitant]
     Active Substance: LEVOCETIRIZINE DIHYDROCHLORIDE
     Indication: Product used for unknown indication
     Dosage: 5 MG

REACTIONS (1)
  - Urticaria [Recovered/Resolved]

NARRATIVE: CASE EVENT DATE: 20240603
